FAERS Safety Report 8556357-3 (Version None)
Quarter: 2012Q3

REPORT INFORMATION
  Report Type: 
  Country: None (occurrence: None)
  Receive Date: 20120801
  Receipt Date: 20080428
  Transmission Date: 20120928
  Serious: Yes (Other)
  Sender: FDA-Public Use
  Company Number: CO-PFIZER INC-2012183963

PATIENT
  Age: 26 Year
  Sex: Female

DRUGS (2)
  1. INSULIN ZINC PROTAMINE INJECTION [Concomitant]
     Dosage: 80-100 IU/ML, ONCE DAILY
  2. LIPITOR [Suspect]
     Dosage: 10 MG, ONCE DAILY

REACTIONS (4)
  - HEADACHE [None]
  - ANGIOPATHY [None]
  - DIZZINESS [None]
  - TOBACCO ABUSE [None]
